FAERS Safety Report 24341793 (Version 2)
Quarter: 2024Q4

REPORT INFORMATION
  Report Type: Report from Study
  Country: CA (occurrence: CA)
  Receive Date: 20240920
  Receipt Date: 20241128
  Transmission Date: 20250115
  Serious: Yes (Other)
  Sender: SANOFI AVENTIS
  Company Number: CA-SA-2024SA270168

PATIENT
  Age: 26 Year
  Sex: Male

DRUGS (5)
  1. DUPILUMAB [Suspect]
     Active Substance: DUPILUMAB
     Indication: Dermatitis atopic
     Dosage: 600 MG, 1X
     Route: 058
     Dates: start: 20240906, end: 20240906
  2. RINVOQ [Concomitant]
     Active Substance: UPADACITINIB
  3. RINVOQ [Concomitant]
     Active Substance: UPADACITINIB
  4. BETADERM [Concomitant]
     Active Substance: BETAMETHASONE VALERATE
  5. BETADERM [Concomitant]
     Active Substance: BETAMETHASONE VALERATE

REACTIONS (3)
  - Syncope [Recovered/Resolved]
  - Pallor [Recovered/Resolved]
  - Vision blurred [Unknown]

NARRATIVE: CASE EVENT DATE: 20240101
